FAERS Safety Report 24105346 (Version 1)
Quarter: 2024Q3

REPORT INFORMATION
  Report Type: Spontaneous
  Country: US (occurrence: None)
  Receive Date: 20240716
  Receipt Date: 20240716
  Transmission Date: 20241016
  Serious: Yes (unspecified)
  Sender: Public
  Company Number: None

PATIENT
  Age: 39 Year
  Sex: Female
  Weight: 56.25 kg

DRUGS (4)
  1. MONTELUKAST [Suspect]
     Active Substance: MONTELUKAST SODIUM
     Indication: Asthma
     Dosage: FREQUENCY : AT BEDTIME;?
     Route: 048
     Dates: end: 20220712
  2. MONTELUKAST [Suspect]
     Active Substance: MONTELUKAST SODIUM
     Indication: Multiple allergies
  3. TOPIRAMATE [Concomitant]
     Active Substance: TOPIRAMATE
  4. RABEPRAZOLE [Concomitant]
     Active Substance: RABEPRAZOLE

REACTIONS (15)
  - Aggression [None]
  - Agitation [None]
  - Irritability [None]
  - Memory impairment [None]
  - Confusional state [None]
  - Anger [None]
  - Anxiety [None]
  - Mood swings [None]
  - Depression [None]
  - Suicidal ideation [None]
  - Insomnia [None]
  - Tremor [None]
  - Mood altered [None]
  - Nervousness [None]
  - Disturbance in attention [None]

NARRATIVE: CASE EVENT DATE: 20220712
